FAERS Safety Report 5952770-9 (Version None)
Quarter: 2008Q4

REPORT INFORMATION
  Report Type: 
  Country: None (occurrence: None)
  Receive Date: 20081114
  Receipt Date: 20081106
  Transmission Date: 20090506
  Serious: Yes (Hospitalization)
  Sender: FDA-Public Use
  Company Number: AU-B.I. PHARMACEUTICALS,INC./RIDGEFIELD-2008-BP-16826AU

PATIENT
  Age: 87 Year
  Sex: Male

DRUGS (7)
  1. MOBIC [Suspect]
     Indication: OSTEOARTHRITIS
     Dosage: 15MG
     Route: 048
     Dates: end: 20080602
  2. SPIRIVA [Suspect]
     Route: 055
  3. COLGOUT [Concomitant]
     Dosage: 40MG
     Route: 048
     Dates: end: 20080602
  4. DIABEX [Concomitant]
     Dates: end: 20080602
  5. NORMISON [Concomitant]
     Dates: end: 20080602
  6. SERETIDE [Concomitant]
     Dosage: 2G
     Route: 048
     Dates: end: 20080502
  7. UREX [Concomitant]
     Dates: end: 20080602

REACTIONS (2)
  - DYSPNOEA [None]
  - OEDEMA PERIPHERAL [None]
